FAERS Safety Report 25349526 (Version 1)
Quarter: 2025Q2

REPORT INFORMATION
  Report Type: Spontaneous
  Country: CN (occurrence: CN)
  Receive Date: 20250522
  Receipt Date: 20250522
  Transmission Date: 20250717
  Serious: Yes (Hospitalization)
  Sender: BEIGENE
  Company Number: CN-BEIGENE-BGN-2025-007885

PATIENT
  Age: 57 Year

DRUGS (4)
  1. TISLELIZUMAB [Suspect]
     Active Substance: TISLELIZUMAB
     Indication: Neoadjuvant therapy
  2. TISLELIZUMAB [Suspect]
     Active Substance: TISLELIZUMAB
  3. OXALIPLATIN [Suspect]
     Active Substance: OXALIPLATIN
     Indication: Neoadjuvant therapy
  4. CAPECITABINE [Suspect]
     Active Substance: CAPECITABINE
     Indication: Neoadjuvant therapy

REACTIONS (1)
  - Facial nerve neuritis [Recovering/Resolving]
